FAERS Safety Report 13676488 (Version 5)
Quarter: 2017Q3

REPORT INFORMATION
  Report Type: Spontaneous
  Country: IT (occurrence: IT)
  Receive Date: 20170622
  Receipt Date: 20170720
  Transmission Date: 20171127
  Serious: Yes (Death)
  Sender: FDA-Public Use
  Company Number: IT-ROCHE-1952012

PATIENT
  Age: 79 Year
  Sex: Male
  Weight: 87 kg

DRUGS (11)
  1. MABTHERA [Suspect]
     Active Substance: RITUXIMAB
     Dosage: CYCLE 2 TO 5 AT 500 MG/M2
     Route: 042
     Dates: start: 20151216, end: 20160414
  2. RANITIDINE. [Concomitant]
     Active Substance: RANITIDINE
     Dosage: ^150 MG FILM-COATED TABLETS^ 20 TABLETS
     Route: 048
  3. BACTRIM [Concomitant]
     Active Substance: SULFAMETHOXAZOLE\TRIMETHOPRIM
     Dosage: ^80 MG + 400 MG TABLETS^ 20 TABLETS
     Route: 048
  4. ADENURIC [Concomitant]
     Active Substance: FEBUXOSTAT
  5. CORDARONE [Concomitant]
     Active Substance: AMIODARONE HYDROCHLORIDE
     Indication: ATRIAL FLUTTER
     Dosage: ^200 MG TABLETS^ 20 TABLETS
     Route: 065
  6. AVODART [Concomitant]
     Active Substance: DUTASTERIDE
     Dosage: 0.5 MG, 30 CAPSULES IN PVC/PVDC BLISTER PACK
     Route: 065
  7. SIVASTIN [Concomitant]
     Active Substance: SIMVASTATIN
     Dosage: 20 MG, 10 TABLETS
     Route: 065
  8. ACYCLOVIR. [Concomitant]
     Active Substance: ACYCLOVIR
     Dosage: ^200 MG TABLETS^ 25 TABLETS
     Route: 065
  9. BENDAMUSTINE [Concomitant]
     Active Substance: BENDAMUSTINE
     Dosage: CYCLE 1?TOTAL 6 CYCLES - 180 MG ON DAY 1 AND 2
     Route: 065
  10. COUMADIN [Concomitant]
     Active Substance: WARFARIN SODIUM
     Dosage: 5 MG,30
     Route: 065
  11. MABTHERA [Suspect]
     Active Substance: RITUXIMAB
     Indication: CHRONIC LYMPHOCYTIC LEUKAEMIA
     Dosage: CYCLE 1 - 750 MG
     Route: 042
     Dates: start: 201511, end: 201511

REACTIONS (1)
  - Progressive multifocal leukoencephalopathy [Fatal]

NARRATIVE: CASE EVENT DATE: 201605
